FAERS Safety Report 20403118 (Version 3)
Quarter: 2022Q1

REPORT INFORMATION
  Report Type: Report from Study
  Country: GB (occurrence: GB)
  Receive Date: 20220131
  Receipt Date: 20220208
  Transmission Date: 20220424
  Serious: Yes (Hospitalization)
  Sender: FDA-Public Use
  Company Number: GB-ABBVIE-21K-167-4056557-00

PATIENT
  Age: 57 Year
  Sex: Female

DRUGS (11)
  1. HUMIRA [Suspect]
     Active Substance: ADALIMUMAB
     Indication: Colitis ulcerative
     Route: 058
     Dates: start: 201601, end: 20160914
  2. MERCAPTOPURINE [Suspect]
     Active Substance: MERCAPTOPURINE
     Indication: Colitis ulcerative
     Route: 048
     Dates: start: 20160623, end: 20170110
  3. MERCAPTOPURINE [Suspect]
     Active Substance: MERCAPTOPURINE
     Route: 048
     Dates: start: 20170111, end: 20200617
  4. MERCAPTOPURINE [Suspect]
     Active Substance: MERCAPTOPURINE
     Route: 048
     Dates: start: 20200618, end: 20200702
  5. OMEPRAZOLE [Concomitant]
     Active Substance: OMEPRAZOLE
     Indication: Prophylaxis
     Route: 048
     Dates: start: 20161116
  6. FOLIC ACID [Concomitant]
     Active Substance: FOLIC ACID
     Indication: Colitis ulcerative
     Route: 048
     Dates: start: 20180314
  7. MESALAMINE [Concomitant]
     Active Substance: MESALAMINE
     Indication: Colitis ulcerative
     Route: 048
     Dates: start: 20120502, end: 20170913
  8. MESALAMINE [Concomitant]
     Active Substance: MESALAMINE
     Route: 048
     Dates: start: 20170914
  9. ESTRADIOL\NORETHINDRONE ACETATE [Concomitant]
     Active Substance: ESTRADIOL\NORETHINDRONE ACETATE
     Indication: Menopausal symptoms
     Route: 048
     Dates: start: 20170101
  10. ENOXAPARIN SODIUM [Concomitant]
     Active Substance: ENOXAPARIN SODIUM
     Indication: Drug therapy
     Route: 058
     Dates: start: 20201001
  11. ACETAMINOPHEN [Concomitant]
     Active Substance: ACETAMINOPHEN
     Indication: Analgesic therapy
     Dosage: AS REQUIRED
     Route: 048
     Dates: start: 20210308

REACTIONS (1)
  - Postoperative adhesion [Recovered/Resolved]

NARRATIVE: CASE EVENT DATE: 20210702
